FAERS Safety Report 11053358 (Version 2)
Quarter: 2015Q2

REPORT INFORMATION
  Report Type: Spontaneous
  Country: US (occurrence: US)
  Receive Date: 20150421
  Receipt Date: 20150525
  Transmission Date: 20150821
  Serious: No
  Sender: FDA-Public Use
  Company Number: US-JNJFOC-20140111929

PATIENT
  Sex: Male
  Weight: 83.92 kg

DRUGS (3)
  1. LITHIUM. [Concomitant]
     Active Substance: LITHIUM
     Indication: SCHIZOAFFECTIVE DISORDER
     Route: 048
  2. ZOLOFT [Concomitant]
     Active Substance: SERTRALINE HYDROCHLORIDE
     Indication: SCHIZOAFFECTIVE DISORDER
     Route: 048
  3. RISPERDAL [Suspect]
     Active Substance: RISPERIDONE
     Indication: SCHIZOAFFECTIVE DISORDER
     Route: 048

REACTIONS (1)
  - Drug ineffective [Unknown]
